FAERS Safety Report 8110880-4 (Version None)
Quarter: 2012Q1

REPORT INFORMATION
  Report Type: 
  Country: None (occurrence: None)
  Receive Date: 20120203
  Receipt Date: 20120127
  Transmission Date: 20120608
  Serious: Yes (Other)
  Sender: FDA-Public Use
  Company Number: US-JNJFOC-20120200038

PATIENT
  Sex: Female

DRUGS (2)
  1. ROGAINE [Suspect]
     Indication: HAIR GROWTH ABNORMAL
     Route: 061
  2. ROGAINE [Suspect]
     Route: 061

REACTIONS (2)
  - CHORIORETINOPATHY [None]
  - WRONG DRUG ADMINISTERED [None]
